FAERS Safety Report 8390473-4 (Version None)
Quarter: 2012Q2

REPORT INFORMATION
  Report Type: 
  Country: None (occurrence: None)
  Receive Date: 20120522
  Receipt Date: 20120509
  Transmission Date: 20120825
  Serious: Yes (Life-Threatening, Other)
  Sender: FDA-Public Use
  Company Number: GB-1192085

PATIENT
  Age: 39 Year
  Sex: Male
  Weight: 66.7 kg

DRUGS (3)
  1. TRAMADOL HCL [Concomitant]
  2. LACTULOSE [Concomitant]
  3. CILOXAN [Suspect]
     Dates: start: 20120412

REACTIONS (1)
  - ANAPHYLACTIC REACTION [None]
